FAERS Safety Report 7149254-1 (Version None)
Quarter: 2010Q4

REPORT INFORMATION
  Report Type: 
  Country: None (occurrence: None)
  Receive Date: 20101209
  Receipt Date: 20101126
  Transmission Date: 20110411
  Serious: Yes (Other)
  Sender: FDA-Public Use
  Company Number: GXKR2010DE13419

PATIENT
  Age: 70 Year
  Sex: Female

DRUGS (3)
  1. GEMCITABINE (NGX) [Suspect]
     Indication: TRANSITIONAL CELL CARCINOMA
     Dosage: 1500 MG, BID
     Route: 065
  2. CARBOPLATIN [Suspect]
     Indication: TRANSITIONAL CELL CARCINOMA
     Dosage: 450 MG, QD
  3. CISPLATIN [Suspect]
     Dosage: 110 MG, QD

REACTIONS (6)
  - CYANOSIS [None]
  - HAEMORRHAGE [None]
  - ISCHAEMIA [None]
  - OEDEMA [None]
  - PAIN [None]
  - PARAESTHESIA [None]
